FAERS Safety Report 8286609-6 (Version None)
Quarter: 2012Q2

REPORT INFORMATION
  Report Type: 
  Country: None (occurrence: None)
  Receive Date: 20120416
  Receipt Date: 20120404
  Transmission Date: 20120825
  Serious: Yes (Death, Hospitalization)
  Sender: FDA-Public Use
  Company Number: US-JNJFOC-20120403190

PATIENT
  Sex: Female
  Weight: 77.57 kg

DRUGS (11)
  1. GLYBURIDE [Concomitant]
  2. SERTRALINE HYDROCHLORIDE [Concomitant]
  3. TRAMADOL HCL [Concomitant]
  4. XARELTO [Suspect]
     Indication: THROMBOSIS PROPHYLAXIS
     Route: 048
  5. SIMVASTATIN [Concomitant]
  6. LOSARTAN POTASSIUM [Concomitant]
  7. VITAMIN [Concomitant]
  8. METOPROLOL TARTRATE [Concomitant]
  9. ESTROGEN [Concomitant]
  10. DIGOXIN [Concomitant]
  11. VICTOZA [Concomitant]

REACTIONS (3)
  - ATRIAL FIBRILLATION [None]
  - HAEMORRHAGE INTRACRANIAL [None]
  - PLATELET COUNT DECREASED [None]
